FAERS Safety Report 4787506-0 (Version None)
Quarter: 2005Q4

REPORT INFORMATION
  Report Type: 
  Country: None (occurrence: None)
  Receive Date: 20051004
  Receipt Date: 20050929
  Transmission Date: 20060501
  Serious: Yes (Hospitalization)
  Sender: FDA-Public Use
  Company Number: HK-SANOFI-SYNTHELABO-F01200502008

PATIENT
  Sex: Female

DRUGS (3)
  1. OXALIPLATIN [Suspect]
     Route: 042
     Dates: start: 20050909, end: 20050909
  2. GEMCITABINE [Suspect]
     Route: 042
     Dates: start: 20050908, end: 20050908
  3. MULTI-VITAMIN [Concomitant]
     Dates: start: 20050518

REACTIONS (1)
  - GINGIVAL BLEEDING [None]
